FAERS Safety Report 16257045 (Version 1)
Quarter: 2019Q2

REPORT INFORMATION
  Report Type: Spontaneous
  Country: RU (occurrence: RU)
  Receive Date: 20190430
  Receipt Date: 20190430
  Transmission Date: 20190711
  Serious: Yes (Other)
  Sender: FDA-Public Use
  Company Number: RU-SA-2019SA114292

PATIENT
  Age: 68 Year
  Sex: Male

DRUGS (1)
  1. TOUJEO [Suspect]
     Active Substance: INSULIN GLARGINE
     Indication: DIABETES MELLITUS
     Dosage: 44 IU, QD
     Route: 058

REACTIONS (3)
  - Skin hyperpigmentation [Recovering/Resolving]
  - Thirst [Recovering/Resolving]
  - Blood glucose abnormal [Recovering/Resolving]
